FAERS Safety Report 9411960 (Version 1)
Quarter: 2013Q3

REPORT INFORMATION
  Report Type: Report from Study
  Country: CA (occurrence: CA)
  Receive Date: 20130722
  Receipt Date: 20130722
  Transmission Date: 20140515
  Serious: Yes (Other)
  Sender: FDA-Public Use
  Company Number: CA-JNJFOC-20130712746

PATIENT
  Age: 59 Year
  Sex: Male
  Weight: 91.9 kg

DRUGS (15)
  1. REMICADE [Suspect]
     Indication: PSORIATIC ARTHROPATHY
     Route: 042
     Dates: start: 20101206
  2. MELOXICAM [Concomitant]
     Route: 065
  3. AMITRIPTYLINE [Concomitant]
     Route: 065
  4. TERAZOSIN [Concomitant]
     Route: 065
  5. METHOTREXATE [Concomitant]
     Route: 065
  6. LANSOPRAZOLE [Concomitant]
     Route: 065
  7. FOLIC ACID [Concomitant]
     Route: 065
  8. CIPROLEX [Concomitant]
     Route: 065
  9. SYNTHROID [Concomitant]
     Route: 065
  10. ATORVASTATIN [Concomitant]
     Route: 065
  11. CIPRO XL [Concomitant]
     Route: 065
  12. SEROQUEL [Concomitant]
     Route: 065
  13. BISOPROLOL [Concomitant]
     Route: 065
  14. FENTANYL [Concomitant]
     Route: 062
  15. APO-K [Concomitant]
     Route: 065

REACTIONS (2)
  - Cardiomegaly [Unknown]
  - Depressed mood [Recovered/Resolved]
